FAERS Safety Report 6379610-0 (Version None)
Quarter: 2009Q3

REPORT INFORMATION
  Report Type: 
  Country: None (occurrence: None)
  Receive Date: 20090928
  Receipt Date: 20090917
  Transmission Date: 20100115
  Serious: Yes (Death)
  Sender: FDA-Public Use
  Company Number: US-PURDUE-USA-2008-0034472

PATIENT
  Age: 19 Month
  Sex: Male
  Weight: 14.512 kg

DRUGS (1)
  1. OXYCONTIN [Suspect]
     Indication: ACCIDENTAL DRUG INTAKE BY CHILD
     Dosage: UNK
     Route: 048
     Dates: start: 20070925

REACTIONS (3)
  - ACCIDENTAL DRUG INTAKE BY CHILD [None]
  - ANOXIC ENCEPHALOPATHY [None]
  - OVERDOSE [None]
